FAERS Safety Report 19798490 (Version 1)
Quarter: 2021Q3

REPORT INFORMATION
  Report Type: Spontaneous
  Country: US (occurrence: US)
  Receive Date: 20210907
  Receipt Date: 20210907
  Transmission Date: 20211014
  Serious: No
  Sender: FDA-Public Use
  Company Number: US-ASTRAZENECA-2021A699078

PATIENT
  Sex: Male
  Weight: 70.3 kg

DRUGS (3)
  1. TAGRISSO [Suspect]
     Active Substance: OSIMERTINIB
     Indication: LUNG NEOPLASM MALIGNANT
     Route: 048
     Dates: start: 20201109, end: 2021
  2. CIALIS [Concomitant]
     Active Substance: TADALAFIL
  3. TAGRISSO [Suspect]
     Active Substance: OSIMERTINIB
     Indication: LUNG NEOPLASM MALIGNANT
     Route: 048
     Dates: start: 2021

REACTIONS (5)
  - Epistaxis [Recovered/Resolved]
  - Blood urine present [Recovered/Resolved]
  - Sinus disorder [Recovering/Resolving]
  - Platelet count decreased [Recovering/Resolving]
  - Intentional product misuse [Unknown]
